FAERS Safety Report 12547744 (Version 2)
Quarter: 2016Q3

REPORT INFORMATION
  Report Type: Spontaneous
  Country: ES (occurrence: ES)
  Receive Date: 20160712
  Receipt Date: 20160713
  Transmission Date: 20161109
  Serious: Yes (Other)
  Sender: FDA-Public Use
  Company Number: ES-HORIZON-PRE-0214-2016

PATIENT
  Age: 22 Year
  Sex: Female

DRUGS (1)
  1. PREDNISONE. [Suspect]
     Active Substance: PREDNISONE
     Indication: HYPOMANIA
     Dosage: 50 MG DAILY

REACTIONS (1)
  - Hypomania [Unknown]
